FAERS Safety Report 8556872-2 (Version None)
Quarter: 2012Q3

REPORT INFORMATION
  Report Type: 
  Country: None (occurrence: None)
  Receive Date: 20120801
  Receipt Date: 20120727
  Transmission Date: 20120928
  Serious: Yes (Hospitalization, Other)
  Sender: FDA-Public Use
  Company Number: US-BAYER-2012-056034

PATIENT
  Age: 69 Year
  Sex: Male

DRUGS (34)
  1. KOGENATE FS [Suspect]
     Dosage: CONTINUOUS INFUSIONS
     Route: 042
     Dates: start: 20111201, end: 20111201
  2. KOGENATE FS [Suspect]
     Dosage: CONTINUOUS INFUSIONS
     Route: 042
     Dates: start: 20110201, end: 20110201
  3. KOGENATE FS [Suspect]
     Dosage: 1710U, 2046U
     Dates: start: 20110616
  4. KOGENATE FS [Suspect]
     Dosage: 3069U, 576 U
     Dates: start: 20110623
  5. KOGENATE FS [Suspect]
     Dosage: 2130 U
     Dates: start: 20120210
  6. KOGENATE FS [Suspect]
     Dosage: 6144U, 13021U
     Dates: start: 20120304
  7. KOGENATE FS [Suspect]
     Dosage: 18612 U
     Dates: start: 20120317
  8. KOGENATE FS [Suspect]
     Dosage: 18612U, 264 U, 4136U
     Dates: start: 20120318
  9. KOGENATE FS [Suspect]
     Dosage: PROPHYLAXIS
     Route: 042
     Dates: start: 20120201
  10. KOGENATE FS [Suspect]
     Dosage: PROPHYLAXIS FOR ONE MONTH
     Dates: start: 20120301
  11. KOGENATE FS [Suspect]
     Dosage: CONTINUOUS INFUSION
     Dates: start: 20120501
  12. KOGENATE FS [Suspect]
     Dosage: 528 U, 6848 U
     Dates: start: 20120211
  13. KOGENATE FS [Suspect]
     Dosage: 1024U, 520U
     Dates: start: 20120212
  14. KOGENATE FS [Suspect]
     Dosage: 18612U 4136U, 8576U,
     Dates: start: 20120520
  15. KOGENATE FS [Suspect]
     Dosage: 264 U
     Dates: start: 20120520
  16. KOGENATE FS [Suspect]
     Dosage: 9306U,8272U 1039U
     Dates: start: 20120522
  17. KOGENATE FS [Suspect]
     Dosage: CONTINUOUS INFUSION
     Route: 042
     Dates: start: 20120301, end: 20120301
  18. KOGENATE FS [Suspect]
     Dosage: 5115U, 6840U,  3069U, 570U
     Dates: start: 20110614
  19. KOGENATE FS [Suspect]
     Dosage: 4084 U,10636 U,8520U
     Dates: start: 20120209
  20. KOGENATE FS [Suspect]
     Dosage: 2042U,1024U
     Dates: start: 20120301
  21. KOGENATE FS [Suspect]
     Dosage: 7168 U,14553U
     Dates: start: 20120302
  22. KOGENATE FS [Suspect]
     Dosage: UNK
     Dates: start: 20120302
  23. KOGENATE FS [Suspect]
     Dosage: 19646U , 9306U
     Dates: start: 20120515
  24. KOGENATE FS [Suspect]
     Dosage: 10650U,10210U
     Dates: start: 20120213
  25. KOGENATE FS [Suspect]
     Dosage: 6144 U
     Dates: start: 20120305
  26. KOGENATE FS [Suspect]
     Dosage: 204 U
     Dates: start: 20120212
  27. KOGENATE FS [Suspect]
     Dosage: 25850 U
     Dates: start: 20120316
  28. KOGENATE FS [Suspect]
     Dosage: 1710U, 2046
     Dates: start: 20110615
  29. KOGENATE FS [Suspect]
     Dosage: 4096 U, 7147 U
     Dates: start: 20120211
  30. KOGENATE FS [Suspect]
     Dosage: 8192U, 528U
     Dates: start: 20120212
  31. KOGENATE FS [Suspect]
     Dosage: 1978 U,1065U
     Dates: start: 20120301
  32. KOGENATE FS [Suspect]
     Dosage: PROPHYLAXIS FOR ONE MONTH
     Dates: start: 20120301
  33. KOGENATE FS [Suspect]
     Dosage: 2116 U, 2316 U,8520 U
     Dates: start: 20120209
  34. KOGENATE FS [Suspect]
     Dosage: 12696 U
     Dates: start: 20120303

REACTIONS (3)
  - HAEMATURIA [None]
  - CHEST PAIN [None]
  - ANTI FACTOR VIII ANTIBODY POSITIVE [None]
